FAERS Safety Report 22524034 (Version 2)
Quarter: 2023Q2

REPORT INFORMATION
  Report Type: Spontaneous
  Country: GB (occurrence: GB)
  Receive Date: 20230606
  Receipt Date: 20230612
  Transmission Date: 20230722
  Serious: Yes (Death, Hospitalization, Other)
  Sender: FDA-Public Use
  Company Number: GB-MHRA-MIDB-4489bb7d-e98f-439b-8ade-006715cd1c62

PATIENT
  Age: 65 Year
  Sex: Female

DRUGS (2)
  1. FUROSEMIDE [Suspect]
     Active Substance: FUROSEMIDE
     Indication: Product used for unknown indication
     Dosage: UNK
     Route: 065
  2. OMEPRAZOLE [Suspect]
     Active Substance: OMEPRAZOLE
     Indication: Product used for unknown indication
     Dosage: UNK
     Route: 065

REACTIONS (8)
  - Hyponatraemia [Fatal]
  - Spinal cord compression [Fatal]
  - Pulmonary embolism [Fatal]
  - Cardio-respiratory arrest [Fatal]
  - Abdominal distension [Fatal]
  - Intestinal obstruction [Fatal]
  - Vomiting [Fatal]
  - Bowel movement irregularity [Fatal]

NARRATIVE: CASE EVENT DATE: 20230505
